FAERS Safety Report 6706926-8 (Version None)
Quarter: 2010Q2

REPORT INFORMATION
  Report Type: 
  Country: None (occurrence: None)
  Receive Date: 20100503
  Receipt Date: 20100423
  Transmission Date: 20101027
  Serious: Yes (Death, Hospitalization, Other)
  Sender: FDA-Public Use
  Company Number: JP-ABBOTT-09P-087-0560029-00

PATIENT
  Age: 73 Year
  Sex: Male

DRUGS (4)
  1. LEUPROLIDE ACETATE [Suspect]
     Indication: PROSTATE CANCER STAGE III
     Route: 058
     Dates: start: 20071012, end: 20080627
  2. LEUPROLIDE ACETATE [Suspect]
     Route: 058
     Dates: start: 20081025, end: 20081025
  3. CASODEX [Concomitant]
     Indication: PROSTATE CANCER STAGE III
     Dates: end: 20081025
  4. BICALUTAMIDE [Concomitant]
     Indication: PROSTATE CANCER STAGE III
     Route: 048

REACTIONS (2)
  - CARDIO-RESPIRATORY ARREST [None]
  - PRINZMETAL ANGINA [None]
